FAERS Safety Report 8826487 (Version 2)
Quarter: 2014Q2

REPORT INFORMATION
  Report Type: Spontaneous
  Country: US (occurrence: US)
  Receive Date: 20121005
  Receipt Date: 20131017
  Transmission Date: 20141212
  Serious: Yes (Other)
  Sender: FDA-Public Use
  Company Number: US-PFIZER INC-2012201737

PATIENT
  Age: 75 Year
  Sex: Female
  Weight: 97.51 kg

DRUGS (5)
  1. ENBREL [Suspect]
     Indication: RHEUMATOID ARTHRITIS
     Dosage: 50 MG, WEEKLY
     Dates: start: 20111229
  2. METHOTREXATE SODIUM [Suspect]
  3. LEFLUNOMIDE [Concomitant]
     Dosage: UNK
  4. HYDROXYCHLOROQUINE [Concomitant]
     Dosage: UNK
  5. PRED [Concomitant]
     Dosage: 7.5 MG, QD

REACTIONS (5)
  - Renal failure chronic [Unknown]
  - Rheumatoid arthritis [Recovered/Resolved]
  - Angioedema [Unknown]
  - Drug effect incomplete [Not Recovered/Not Resolved]
  - Synovitis [Unknown]
